FAERS Safety Report 8328668-8 (Version None)
Quarter: 2012Q2

REPORT INFORMATION
  Report Type: 
  Country: None (occurrence: None)
  Receive Date: 20120502
  Receipt Date: 20120424
  Transmission Date: 20120825
  Serious: Yes (Hospitalization)
  Sender: FDA-Public Use
  Company Number: US-BAYER-2011-053206

PATIENT
  Age: 18 Year
  Sex: Female
  Weight: 89 kg

DRUGS (5)
  1. YAZ [Suspect]
     Dosage: UNK
     Dates: start: 20080401, end: 20080601
  2. YAZ [Suspect]
     Dosage: UNK
     Dates: start: 20090601, end: 20090801
  3. MOTRIN [Concomitant]
     Indication: PAIN
     Dosage: EVERY 4 HOURS
     Dates: start: 20091201
  4. TYLENOL (CAPLET) [Concomitant]
     Indication: PAIN
     Dosage: EVERY 4 HOURS
     Dates: start: 20091201
  5. ALESSE [Concomitant]
     Dosage: UNK
     Dates: start: 20090701, end: 20090801

REACTIONS (12)
  - CHOLECYSTITIS CHRONIC [None]
  - CHOLECYSTECTOMY [None]
  - PAIN [None]
  - EMOTIONAL DISTRESS [None]
  - CONSTIPATION [None]
  - SCAR [None]
  - DYSPEPSIA [None]
  - DEPRESSION [None]
  - ABDOMINAL DISTENSION [None]
  - FLATULENCE [None]
  - DIARRHOEA [None]
  - ANXIETY [None]
